FAERS Safety Report 7344991-8 (Version None)
Quarter: 2011Q1

REPORT INFORMATION
  Report Type: 
  Country: None (occurrence: None)
  Receive Date: 20110302
  Receipt Date: 20110215
  Transmission Date: 20110831
  Serious: Yes (Other)
  Sender: FDA-Public Use
  Company Number: AUR-APL-2011-00633

PATIENT
  Age: 52 Year
  Sex: Female
  Weight: 101.6 kg

DRUGS (3)
  1. FLUOXETINE [Concomitant]
  2. PERINDOPRIL TABLET [Suspect]
     Indication: HYPERTENSION
     Dosage: 4MG-DAILY-ORAL
     Route: 048
     Dates: start: 20110127, end: 20110201
  3. OMEPRAZOLE [Concomitant]

REACTIONS (2)
  - ANGIOEDEMA [None]
  - DYSPHONIA [None]
